FAERS Safety Report 10614692 (Version 2)
Quarter: 2014Q4

REPORT INFORMATION
  Report Type: Report from Study
  Country: AU (occurrence: AU)
  Receive Date: 20141201
  Receipt Date: 20141201
  Transmission Date: 20150529
  Serious: Yes (Other)
  Sender: FDA-Public Use
  Company Number: AU-ROCHE-1464109

PATIENT
  Age: 68 Year
  Sex: Female

DRUGS (3)
  1. METROPOLOL COMP [Concomitant]
     Indication: HYPERTENSION
     Dosage: ONGOING
     Route: 048
     Dates: start: 2012
  2. ACTEMRA [Suspect]
     Active Substance: TOCILIZUMAB
     Indication: RHEUMATOID ARTHRITIS
     Dosage: ONGOING
     Route: 042
     Dates: start: 20130125
  3. ALLOPURINOL. [Concomitant]
     Active Substance: ALLOPURINOL
     Indication: GOUT
     Dosage: ONGOING
     Route: 048
     Dates: start: 2012

REACTIONS (5)
  - Pneumonia [Recovered/Resolved]
  - Back pain [Not Recovered/Not Resolved]
  - Contusion [Unknown]
  - Muscle spasms [Unknown]
  - Lower respiratory tract infection [Recovering/Resolving]

NARRATIVE: CASE EVENT DATE: 20140831
